FAERS Safety Report 7965279-8 (Version None)
Quarter: 2011Q4

REPORT INFORMATION
  Report Type: 
  Country: None (occurrence: None)
  Receive Date: 20111208
  Receipt Date: 20111128
  Transmission Date: 20120403
  Serious: Yes (Hospitalization)
  Sender: FDA-Public Use
  Company Number: US-BAYER-2011-036916

PATIENT
  Age: 46 Year
  Sex: Female
  Weight: 68.027 kg

DRUGS (7)
  1. HISTEX [CARBINOXAMINE] [Concomitant]
  2. TUSSIONEX [BROMHEXINE HYDROCHLORIDE,ZIPEPROL] [Concomitant]
  3. YAZ [Suspect]
     Indication: ACNE
     Dosage: UNK
     Route: 048
     Dates: start: 20081201, end: 20090601
  4. DURADEX [Concomitant]
  5. AMOXICILLIN [Concomitant]
  6. PHENERGAN [Concomitant]
  7. YAZ [Suspect]
     Indication: PREMENSTRUAL SYNDROME

REACTIONS (16)
  - INJURY [None]
  - CHEST PAIN [None]
  - DIZZINESS [None]
  - PULMONARY EMBOLISM [None]
  - ANHEDONIA [None]
  - NIGHT SWEATS [None]
  - DEEP VEIN THROMBOSIS [None]
  - ANXIETY [None]
  - DYSPNOEA [None]
  - OEDEMA PERIPHERAL [None]
  - PAIN [None]
  - PAIN IN EXTREMITY [None]
  - PALPITATIONS [None]
  - MUSCLE SPASMS [None]
  - CYANOSIS [None]
  - GAIT DISTURBANCE [None]
